FAERS Safety Report 22099170 (Version 1)
Quarter: 2023Q1

REPORT INFORMATION
  Report Type: Report from Study
  Country: IT (occurrence: IT)
  Receive Date: 20230315
  Receipt Date: 20230315
  Transmission Date: 20230418
  Serious: Yes (Hospitalization)
  Sender: FDA-Public Use
  Company Number: None

PATIENT
  Age: 41 Year
  Sex: Female

DRUGS (2)
  1. CLARITHROMYCIN [Suspect]
     Active Substance: CLARITHROMYCIN
     Indication: Antibiotic therapy
     Dosage: 1000 MG, QD,1 TABLET OF 500 EVERY 12 HOURS
     Route: 048
     Dates: start: 20230209, end: 20230209
  2. MUPIROCIN CALCIUM [Suspect]
     Active Substance: MUPIROCIN CALCIUM
     Indication: Antibiotic therapy
     Dosage: UNK
     Route: 045
     Dates: start: 20230209, end: 20230209

REACTIONS (4)
  - Face oedema [Recovering/Resolving]
  - Nasal oedema [Recovering/Resolving]
  - Erythema [Recovering/Resolving]
  - Salivary gland enlargement [Recovering/Resolving]

NARRATIVE: CASE EVENT DATE: 20230209
